FAERS Safety Report 5535369-8 (Version None)
Quarter: 2007Q4

REPORT INFORMATION
  Report Type: 
  Country: None (occurrence: None)
  Receive Date: 20071206
  Receipt Date: 20071127
  Transmission Date: 20080405
  Serious: Yes (Death)
  Sender: FDA-Public Use
  Company Number: NL-PFIZER INC-2007081325

PATIENT
  Sex: Female
  Weight: 46 kg

DRUGS (9)
  1. ARTHROTEC [Suspect]
     Indication: BACK PAIN
     Route: 048
  2. ARTHROTEC [Suspect]
     Indication: OSTEOARTHRITIS
  3. EXELON [Suspect]
     Indication: DEMENTIA ALZHEIMER'S TYPE
     Route: 048
  4. ACETYLSALICYLIC ACID SRT [Suspect]
     Indication: TRANSIENT ISCHAEMIC ATTACK
     Route: 048
  5. HALOPERIDOL [Concomitant]
     Dosage: DAILY DOSE:1MG-FREQ:DAILY
  6. PARACETAMOL [Concomitant]
  7. MONO-CEDOCARD RETARD [Concomitant]
     Dosage: DAILY DOSE:25MG-FREQ:DAILY
  8. OXAZEPAM [Concomitant]
  9. MOVICOLON [Concomitant]
     Dates: start: 20061001

REACTIONS (1)
  - GASTRIC HAEMORRHAGE [None]
